FAERS Safety Report 14540851 (Version 1)
Quarter: 2018Q1

REPORT INFORMATION
  Report Type: Spontaneous
  Country: CZ (occurrence: CZ)
  Receive Date: 20180216
  Receipt Date: 20180216
  Transmission Date: 20180509
  Serious: Yes (Other)
  Sender: FDA-Public Use
  Company Number: CZ-OTSUKA-DJ20060609

PATIENT
  Age: 23 Year
  Sex: Male

DRUGS (2)
  1. RIVOTRIL [Concomitant]
     Active Substance: CLONAZEPAM
     Indication: PRODUCT USED FOR UNKNOWN INDICATION
     Dosage: 0.25 MG, UNK
     Route: 065
  2. ABILIFY [Suspect]
     Active Substance: ARIPIPRAZOLE
     Indication: SCHIZOPHRENIA
     Dosage: 15 MG, UNK
     Route: 048
     Dates: start: 20050628, end: 20060124

REACTIONS (5)
  - Dyskinesia [Unknown]
  - Gingival bleeding [Unknown]
  - Bruxism [Unknown]
  - Periostitis [Unknown]
  - Facial spasm [Recovered/Resolved]

NARRATIVE: CASE EVENT DATE: 20051129
